FAERS Safety Report 16719994 (Version 2)
Quarter: 2019Q4

REPORT INFORMATION
  Report Type: Spontaneous
  Country: US (occurrence: US)
  Receive Date: 20190820
  Receipt Date: 20191122
  Transmission Date: 20200122
  Serious: No
  Sender: FDA-Public Use
  Company Number: US-PFIZER INC-2019353454

PATIENT
  Age: 40 Year
  Sex: Female
  Weight: 113 kg

DRUGS (1)
  1. GABAPENTIN. [Suspect]
     Active Substance: GABAPENTIN
     Indication: PAIN
     Dosage: UNK
     Dates: start: 2016, end: 2018

REACTIONS (3)
  - Product use in unapproved indication [Unknown]
  - Migraine [Recovered/Resolved]
  - Off label use [Unknown]
